FAERS Safety Report 5615274-9 (Version None)
Quarter: 2008Q1

REPORT INFORMATION
  Report Type: 
  Country: None (occurrence: None)
  Receive Date: 20080206
  Receipt Date: 20080130
  Transmission Date: 20080703
  Serious: Yes (Hospitalization, Other)
  Sender: FDA-Public Use
  Company Number: PHHY2008JP00962

PATIENT
  Age: 62 Year
  Sex: Male

DRUGS (4)
  1. DIOVAN [Suspect]
     Indication: HYPERTENSION
     Dosage: 80 MG/DAY
     Route: 048
     Dates: start: 20080110
  2. BEZATOL - SLOW RELEASE [Concomitant]
     Dosage: 200 MG, UNK
  3. ALOSITOL [Concomitant]
     Dosage: 100 MG, UNK
     Route: 048
  4. ASPIRIN [Concomitant]
     Dosage: 100 MG, UNK
     Route: 048

REACTIONS (1)
  - CEREBRAL HAEMORRHAGE [None]
